FAERS Safety Report 8224650-X (Version None)
Quarter: 2012Q1

REPORT INFORMATION
  Report Type: 
  Country: None (occurrence: None)
  Receive Date: 20120321
  Receipt Date: 20120312
  Transmission Date: 20120608
  Serious: Yes (Other)
  Sender: FDA-Public Use
  Company Number: US-AMGEN-USASP2010001560

PATIENT
  Age: 64 Year
  Sex: Male

DRUGS (10)
  1. RITUXIMAB [Concomitant]
     Indication: CHEMOTHERAPY
     Dosage: UNK
  2. CALCIUM CARBONATE [Concomitant]
     Indication: HYPOCALCAEMIA
     Dosage: UNK UNK, 3 TIMES/WK
     Route: 042
  3. DOXORUBICIN HCL [Concomitant]
     Indication: CHEMOTHERAPY
     Dosage: UNK
  4. PREDNISOLONE [Concomitant]
     Indication: CHEMOTHERAPY
     Dosage: UNK
  5. VINCRISTINE [Concomitant]
     Indication: CHEMOTHERAPY
  6. PROLIA [Suspect]
     Indication: HYPERCALCAEMIA
     Dosage: 60 MG, ONE TIME DOSE
     Route: 058
     Dates: start: 20100910
  7. ETOPOSIDE [Concomitant]
  8. CYCLOPHOSPHAMIDE [Concomitant]
     Indication: CHEMOTHERAPY
  9. CALCIUM CARBONATE [Concomitant]
     Indication: HYPOCALCAEMIA
     Dosage: 6000 MG, QD
     Route: 048
  10. PAMIDRONATE DISODIUM [Concomitant]
     Indication: HYPERCALCAEMIA

REACTIONS (4)
  - HYPOCALCAEMIA [None]
  - CONVULSION [None]
  - CELLULITIS [None]
  - HYPERPARATHYROIDISM SECONDARY [None]
